FAERS Safety Report 8906539 (Version 1)
Quarter: 2012Q4

REPORT INFORMATION
  Report Type: Spontaneous
  Country: GB (occurrence: None)
  Receive Date: 20121107
  Receipt Date: 20121107
  Transmission Date: 20130627
  Serious: Yes (Life-Threatening, Hospitalization)
  Sender: FDA-Public Use
  Company Number: DSA_60740_2012

PATIENT
  Age: 27 Year
  Sex: Male

DRUGS (5)
  1. BUPROPION HYDROCHLORIDE [Suspect]
     Indication: DEPRESSION
     Dosage: (DF the prescribed amount Oral)
     Route: 048
     Dates: end: 20120524
  2. BUPROPION HYDROCHLORIDE [Suspect]
     Indication: DEPRESSION
     Route: 048
     Dates: start: 20120509, end: 20120602
  3. ESCITALOPRAM (UNKNOWN) [Concomitant]
  4. MIRTAZAPINE [Concomitant]
  5. LAMOTRIGINE [Concomitant]

REACTIONS (3)
  - Convulsion [None]
  - Intentional overdose [None]
  - Intentional drug misuse [None]
